FAERS Safety Report 4641700-8 (Version None)
Quarter: 2005Q2

REPORT INFORMATION
  Report Type: 
  Country: None (occurrence: None)
  Receive Date: 20050420
  Receipt Date: 20050405
  Transmission Date: 20051028
  Serious: Yes (Hospitalization)
  Sender: FDA-Public Use
  Company Number: 2004BI000543

PATIENT
  Age: 51 Year
  Sex: Female
  Weight: 63.5036 kg

DRUGS (6)
  1. AVONEX [Suspect]
     Indication: MULTIPLE SCLEROSIS
     Dosage: 30 UG; QW; IM
     Route: 030
     Dates: start: 20010101, end: 20040301
  2. AVONEX [Suspect]
     Indication: MULTIPLE SCLEROSIS
     Dosage: 30 UG; QW; IM
     Route: 030
     Dates: start: 20040301
  3. ATIVAN [Concomitant]
  4. PILL TO STOP SMOKING [Concomitant]
  5. OXYBUTYNIN [Concomitant]
  6. ELAVIL [Concomitant]

REACTIONS (7)
  - BLINDNESS UNILATERAL [None]
  - DIFFICULTY IN WALKING [None]
  - GAIT DISTURBANCE [None]
  - HEADACHE [None]
  - PUPILLARY REFLEX IMPAIRED [None]
  - TOOTH DISORDER [None]
  - WEIGHT DECREASED [None]
